FAERS Safety Report 5460755-4 (Version None)
Quarter: 2007Q3

REPORT INFORMATION
  Report Type: 
  Country: None (occurrence: None)
  Receive Date: 20070918
  Receipt Date: 20070910
  Transmission Date: 20080115
  Serious: Yes (Other)
  Sender: FDA-Public Use
  Company Number: B0487123A

PATIENT
  Age: 66 Year
  Sex: Male

DRUGS (6)
  1. MELPHALAN TABLET (MELPHALAN) (GENERIC) [Suspect]
     Indication: MYELODYSPLASTIC SYNDROME
     Dosage: CYCLIC / ORAL
     Route: 048
  2. CYTARABINE [Suspect]
     Indication: MYELODYSPLASTIC SYNDROME
     Dosage: 10 MG/M2 / TWICE PER DAY / SUBCUTANEOU
     Route: 058
  3. MITOXANTRONE [Suspect]
     Indication: MYELODYSPLASTIC SYNDROME
     Dosage: 3 MG/M2 / SEE DOSAGE TEXT / INTRAVENO
     Route: 042
  4. ANTI-EMETIC [Concomitant]
  5. LEVOFLOXACIN [Concomitant]
  6. FLUCONAZOLE [Concomitant]

REACTIONS (2)
  - NEUTROPENIA [None]
  - THROMBOCYTOPENIA [None]
